FAERS Safety Report 8378422-6 (Version None)
Quarter: 2012Q2

REPORT INFORMATION
  Report Type: 
  Country: None (occurrence: None)
  Receive Date: 20120522
  Receipt Date: 20120403
  Transmission Date: 20120825
  Serious: No
  Sender: FDA-Public Use
  Company Number: US-ASTRAZENECA-2012SE22319

PATIENT
  Sex: Male

DRUGS (1)
  1. OMEPRAZOLE [Suspect]
     Dosage: 1-20 PRESCRIPTION STRENGTH 1 TIME PER DAY
     Route: 048

REACTIONS (2)
  - DYSPNOEA [None]
  - ASTHMA [None]
